FAERS Safety Report 26028932 (Version 2)
Quarter: 2025Q4

REPORT INFORMATION
  Report Type: Report from Study
  Country: CA (occurrence: CA)
  Receive Date: 20251112
  Receipt Date: 20251217
  Transmission Date: 20260118
  Serious: Yes (Other)
  Sender: JOHNSON AND JOHNSON
  Company Number: CA-JNJFOC-20250919521

PATIENT
  Age: 12 Year
  Sex: Female
  Weight: 46 kg

DRUGS (2)
  1. REMICADE [Suspect]
     Active Substance: INFLIXIMAB
     Indication: Crohn^s disease
     Route: 041
     Dates: start: 20221124
  2. REMICADE [Suspect]
     Active Substance: INFLIXIMAB
     Dosage: IV STAT FOLLOWED BY Q4WEEKS
     Route: 041

REACTIONS (4)
  - Crohn^s disease [Recovering/Resolving]
  - Drug level decreased [Unknown]
  - Rash [Unknown]
  - Incorrect product administration duration [Unknown]

NARRATIVE: CASE EVENT DATE: 20250904
